FAERS Safety Report 7651649-4 (Version None)
Quarter: 2011Q3

REPORT INFORMATION
  Report Type: 
  Country: None (occurrence: None)
  Receive Date: 20110802
  Receipt Date: 20110725
  Transmission Date: 20111222
  Serious: Yes (Death)
  Sender: FDA-Public Use
  Company Number: AU-BAXTER-2011BH024407

PATIENT
  Age: 87 Year
  Sex: Female

DRUGS (3)
  1. DIANEAL [Suspect]
     Indication: PERITONEAL DIALYSIS
     Route: 033
     Dates: end: 20110723
  2. EXTRANEAL [Suspect]
     Indication: PERITONEAL DIALYSIS
     Route: 033
     Dates: end: 20110723
  3. DIANEAL [Suspect]
     Route: 033
     Dates: end: 20110723

REACTIONS (1)
  - DEATH [None]
